FAERS Safety Report 10816569 (Version 6)
Quarter: 2019Q4

REPORT INFORMATION
  Report Type: Spontaneous
  Country: US (occurrence: US)
  Receive Date: 20150218
  Receipt Date: 20191219
  Transmission Date: 20200122
  Serious: Yes (Hospitalization, Other)
  Sender: FDA-Public Use
  Company Number: US-PFIZER INC-2015059685

PATIENT
  Age: 52 Year
  Sex: Female
  Weight: 100 kg

DRUGS (8)
  1. LYRICA [Suspect]
     Active Substance: PREGABALIN
     Indication: FIBROMYALGIA
     Dosage: UNK
     Dates: start: 2012
  2. LYRICA [Suspect]
     Active Substance: PREGABALIN
     Dosage: 300 MG, 3X/DAY
     Route: 048
  3. BACLOFEN. [Concomitant]
     Active Substance: BACLOFEN
     Dosage: UNK, AS NEEDED (3 TIMES LAST MONTH AS NEEDED)
  4. CELEXA [Concomitant]
     Active Substance: CITALOPRAM HYDROBROMIDE
     Dosage: 40 MG, SINGLE
  5. NORCO [Concomitant]
     Active Substance: ACETAMINOPHEN\HYDROCODONE BITARTRATE
     Dosage: 10 MG, (3-4 TIMES A DAY)
  6. LYRICA [Suspect]
     Active Substance: PREGABALIN
     Indication: NERVE INJURY
     Dosage: 300 MG, 2X/DAY
  7. LYRICA [Suspect]
     Active Substance: PREGABALIN
     Indication: AORTIC ANEURYSM
     Dosage: 300 MG, 1X/DAY (BEEN TAKING LIKE 1 PILL TO TRY TO STRETCH IT)
     Route: 048
  8. LYRICA [Suspect]
     Active Substance: PREGABALIN
     Indication: NEUROPATHY PERIPHERAL
     Dosage: 300 MG, 3X/DAY (270 CAPSULES, DAYS^ SUPPLY: 90)
     Route: 048

REACTIONS (5)
  - Gastric infection [Unknown]
  - Prescribed overdose [Unknown]
  - Malaise [Unknown]
  - Intentional product use issue [Unknown]
  - Disease recurrence [Unknown]
